FAERS Safety Report 16947632 (Version 1)
Quarter: 2019Q4

REPORT INFORMATION
  Report Type: Report from Study
  Country: US (occurrence: US)
  Receive Date: 20191022
  Receipt Date: 20191022
  Transmission Date: 20200122
  Serious: Yes (Death)
  Sender: FDA-Public Use
  Company Number: US-EISAI MEDICAL RESEARCH-EC-2019-057757

PATIENT
  Age: 53 Year
  Sex: Male

DRUGS (3)
  1. LENVIMA [Suspect]
     Active Substance: LENVATINIB
     Indication: THYROID CANCER
     Route: 048
     Dates: start: 20190530, end: 20190609
  2. LENVIMA [Suspect]
     Active Substance: LENVATINIB
     Route: 048
     Dates: start: 20190829
  3. LENVIMA [Suspect]
     Active Substance: LENVATINIB
     Dosage: 20 MG ALTERNATING WITH 10 MG EVERY OTHER DAY
     Route: 048
     Dates: start: 20190610, end: 20190828

REACTIONS (16)
  - Fatigue [Not Recovered/Not Resolved]
  - Myalgia [Not Recovered/Not Resolved]
  - Impaired healing [Unknown]
  - Blood pressure increased [Not Recovered/Not Resolved]
  - Muscular weakness [Recovering/Resolving]
  - Peripheral swelling [Recovering/Resolving]
  - Skin discolouration [Recovering/Resolving]
  - Arthralgia [Not Recovered/Not Resolved]
  - Malignant neoplasm progression [Not Recovered/Not Resolved]
  - Dry skin [Not Recovered/Not Resolved]
  - Pain in extremity [Not Recovered/Not Resolved]
  - Rash pruritic [Recovering/Resolving]
  - Incision site pain [Unknown]
  - Death [Fatal]
  - Dysphonia [Not Recovered/Not Resolved]
  - Headache [Not Recovered/Not Resolved]

NARRATIVE: CASE EVENT DATE: 20190530
